FAERS Safety Report 5579340-9 (Version None)
Quarter: 2007Q4

REPORT INFORMATION
  Report Type: 
  Country: None (occurrence: None)
  Receive Date: 20071221
  Receipt Date: 20071218
  Transmission Date: 20080405
  Serious: Yes (Other)
  Sender: FDA-Public Use
  Company Number: 2007337976

PATIENT
  Age: 69 Year
  Sex: Female

DRUGS (2)
  1. LUBRIDERM DAILY MOISTURE (NO ACTIVE INGREDIENT) [Suspect]
     Indication: DRY SKIN
     Dosage: A LITTLE ONCE DAILY AFTER SHOWER (1 IN 1 D), TOPICAL; 10 MG DAILY
     Route: 061
     Dates: start: 20071214, end: 20071215
  2. LIPITOR [Concomitant]

REACTIONS (4)
  - EYE SWELLING [None]
  - HYPERSENSITIVITY [None]
  - RASH [None]
  - SKIN DISORDER [None]
